FAERS Safety Report 16029118 (Version 1)
Quarter: 2019Q2

REPORT INFORMATION
  Report Type: Spontaneous
  Country: US (occurrence: US)
  Receive Date: 20190302
  Receipt Date: 20190302
  Transmission Date: 20190711
  Serious: Yes (Disabling)
  Sender: FDA-Public Use
  Company Number: None

PATIENT
  Age: 41 Year
  Sex: Male
  Weight: 90 kg

DRUGS (4)
  1. ENBREL [Suspect]
     Active Substance: ETANERCEPT
     Indication: PSORIATIC ARTHROPATHY
     Dosage: ?          QUANTITY:1 INJECTION(S);OTHER FREQUENCY:1 WEEKLY INJECTION;?
     Route: 058
     Dates: start: 20080101, end: 20181120
  2. SULINDAC. [Concomitant]
     Active Substance: SULINDAC
  3. MAGNESIUM SUPPLEMENT [Concomitant]
  4. HUMIRA [Concomitant]
     Active Substance: ADALIMUMAB

REACTIONS (1)
  - Immune thrombocytopenic purpura [None]

NARRATIVE: CASE EVENT DATE: 20180116
